FAERS Safety Report 4326593-0 (Version None)
Quarter: 2004Q1

REPORT INFORMATION
  Report Type: 
  Country: None (occurrence: None)
  Receive Date: 20040325
  Receipt Date: 20031209
  Transmission Date: 20041129
  Serious: Yes (Hospitalization)
  Sender: FDA-Public Use
  Company Number: US060082

PATIENT
  Age: 75 Year
  Sex: Female

DRUGS (8)
  1. NEULASTA [Suspect]
     Indication: CHEMOTHERAPY
     Dosage: 6 MG, AFTER CHEMO, SC
     Route: 058
     Dates: start: 20030614
  2. RITUXIMAB [Concomitant]
  3. CYCLOPHOSPHAMIDE [Concomitant]
  4. DOXORUBICIN HYDROOCHLORIDE [Concomitant]
  5. VINCRISTINE [Concomitant]
  6. PREDNISONE [Concomitant]
  7. DEXRAZOXANE [Concomitant]
  8. FERROUS SULFATE TAB [Concomitant]

REACTIONS (4)
  - DIVERTICULITIS [None]
  - DYSPHONIA [None]
  - FEBRILE NEUTROPENIA [None]
  - GRANULOCYTOPENIA [None]
